FAERS Safety Report 4645207-3 (Version None)
Quarter: 2005Q2

REPORT INFORMATION
  Report Type: 
  Country: None (occurrence: None)
  Receive Date: 20050426
  Receipt Date: 20030527
  Transmission Date: 20051028
  Serious: Yes (Other)
  Sender: FDA-Public Use
  Company Number: JP-GLAXOSMITHKLINE-B0301013A

PATIENT
  Age: 53 Year
  Sex: Female
  Weight: 72 kg

DRUGS (14)
  1. ZEFFIX [Suspect]
     Indication: HEPATITIS B
     Route: 048
     Dates: start: 20030326, end: 20030508
  2. CEFTAZIDIME SODIUM [Concomitant]
     Indication: INFECTION PROPHYLAXIS
     Dosage: 2G PER DAY
     Route: 042
     Dates: start: 20030409, end: 20030512
  3. UNASYN [Concomitant]
     Indication: INFECTION PROPHYLAXIS
     Dosage: 3G PER DAY
     Route: 042
     Dates: start: 20030409, end: 20030412
  4. TACROLIMUS HYDRATE [Concomitant]
     Route: 065
     Dates: start: 20030409
  5. METHYLPREDNISOLONE [Concomitant]
     Route: 065
     Dates: start: 20030409
  6. NICARDIPINE HCL [Concomitant]
     Route: 065
     Dates: start: 20030409, end: 20030418
  7. AMPHOTERICIN B [Concomitant]
     Route: 065
     Dates: start: 20030409, end: 20030418
  8. SPIRONOLACTONE [Concomitant]
     Route: 048
     Dates: start: 20030409, end: 20030418
  9. ACETAZOLAMIDE [Concomitant]
     Route: 065
     Dates: start: 20030409, end: 20030418
  10. FLUCONAZOLE [Concomitant]
     Route: 065
     Dates: start: 20030409, end: 20030418
  11. URSODEOXYCHOLIC ACID [Concomitant]
     Route: 048
     Dates: start: 20030409, end: 20030418
  12. MOSAPRIDE CITRATE [Concomitant]
     Route: 048
     Dates: start: 20030409, end: 20030418
  13. LANSOPRAZOLE [Concomitant]
     Route: 048
     Dates: start: 20030415, end: 20030508
  14. VANCOMYCIN HYDROCHLORIDE [Concomitant]
     Route: 065
     Dates: start: 20030510, end: 20030512

REACTIONS (6)
  - ALANINE AMINOTRANSFERASE INCREASED [None]
  - ASPARTATE AMINOTRANSFERASE INCREASED [None]
  - GENERAL PHYSICAL HEALTH DETERIORATION [None]
  - HEPATIC FUNCTION ABNORMAL [None]
  - LIVER DISORDER [None]
  - TRANSPLANT REJECTION [None]
